FAERS Safety Report 23098080 (Version 2)
Quarter: 2023Q4

REPORT INFORMATION
  Report Type: Spontaneous
  Country: US (occurrence: US)
  Receive Date: 20231023
  Receipt Date: 20231102
  Transmission Date: 20240109
  Serious: Yes (Other)
  Sender: FDA-Public Use
  Company Number: US-MEDEXUS PHARMA, INC.-2023MED00432

PATIENT
  Sex: Male
  Weight: 104.31 kg

DRUGS (2)
  1. RASUVO [Suspect]
     Active Substance: METHOTREXATE SODIUM
     Indication: Myositis
     Dosage: 25 MG, 1X/WEEK
     Route: 065
     Dates: start: 2019
  2. DELORCOR [Concomitant]

REACTIONS (2)
  - Myositis [Unknown]
  - Drug ineffective for unapproved indication [Not Recovered/Not Resolved]

NARRATIVE: CASE EVENT DATE: 20190101
